FAERS Safety Report 5242551-6 (Version None)
Quarter: 2007Q1

REPORT INFORMATION
  Report Type: 
  Country: None (occurrence: None)
  Receive Date: 20061201
  Receipt Date: 20060815
  Transmission Date: 20070707
  Serious: No
  Sender: FDA-Public Use
  Company Number: 2006PV011164

PATIENT
  Age: 60 Year
  Sex: Female
  Weight: 92.5338 kg

DRUGS (6)
  1. BYETTA [Suspect]
     Indication: DIABETES MELLITUS NON-INSULIN-DEPENDENT
     Dosage: 10 MCG BID SC
     Route: 058
     Dates: start: 20060301
  2. BYETTA [Suspect]
     Indication: DIABETES MELLITUS NON-INSULIN-DEPENDENT
     Dosage: 5 MCG BID SC
     Route: 058
     Dates: start: 20060302, end: 20060328
  3. BYETTA [Suspect]
     Indication: DIABETES MELLITUS NON-INSULIN-DEPENDENT
     Dosage: 5 MCG QAM SC
     Route: 058
     Dates: start: 20060223, end: 20060301
  4. METFORMIN [Concomitant]
  5. ACTOS [Concomitant]
  6. TYLENOL [Concomitant]

REACTIONS (8)
  - ABDOMINAL PAIN [None]
  - CONDITION AGGRAVATED [None]
  - DECREASED APPETITE [None]
  - EYE PAIN [None]
  - EYELID IRRITATION [None]
  - EYELIDS PRURITUS [None]
  - NAUSEA [None]
  - RASH [None]
